FAERS Safety Report 7999050 (Version 2)
Quarter: 2013Q2

REPORT INFORMATION
  Report Type: Report from Study
  Country: DE (occurrence: DE)
  Receive Date: 20110621
  Receipt Date: 20130522
  Transmission Date: 20140414
  Serious: Yes (Hospitalization)
  Sender: FDA-Public Use
  Company Number: DE-JNJFOC-20110608248

PATIENT
  Age: 68 Year
  Sex: Male

DRUGS (4)
  1. GOLIMUMAB [Suspect]
     Indication: RHEUMATOID ARTHRITIS
     Route: 058
     Dates: start: 20110422, end: 20110423
  2. GOLIMUMAB [Suspect]
     Indication: RHEUMATOID ARTHRITIS
     Route: 058
     Dates: start: 20100322
  3. CORTISONE [Concomitant]
     Dates: start: 201005
  4. METHOTREXATE [Concomitant]
     Dates: start: 201005

REACTIONS (1)
  - Cerebellar infarction [Recovered/Resolved]
